FAERS Safety Report 14546884 (Version 2)
Quarter: 2018Q1

REPORT INFORMATION
  Report Type: Spontaneous
  Country: US (occurrence: US)
  Receive Date: 20180219
  Receipt Date: 20180222
  Transmission Date: 20180509
  Serious: No
  Sender: FDA-Public Use
  Company Number: US-PFIZER INC-2018065720

PATIENT

DRUGS (3)
  1. CARBOPLATIN. [Suspect]
     Active Substance: CARBOPLATIN
     Dosage: UNK, CYCLIC (6 CYCLES)
  2. ALECTINIB. [Suspect]
     Active Substance: ALECTINIB
     Dosage: UNK UNK, CYCLIC (6 CYCLES)
  3. VP-16 [Suspect]
     Active Substance: ETOPOSIDE
     Dosage: UNK, CYCLIC (6 CYCLES)

REACTIONS (11)
  - Chest pain [Unknown]
  - Weight decreased [Unknown]
  - Hypophagia [Unknown]
  - Back pain [Unknown]
  - Pain in extremity [Unknown]
  - Fatigue [Unknown]
  - Asthenia [Unknown]
  - Weight increased [Unknown]
  - Oedema peripheral [Unknown]
  - Decreased appetite [Unknown]
  - Vomiting [Unknown]

NARRATIVE: CASE EVENT DATE: 20171012
